FAERS Safety Report 23952612 (Version 2)
Quarter: 2024Q3

REPORT INFORMATION
  Report Type: Report from Study
  Country: IL (occurrence: IL)
  Receive Date: 20240607
  Receipt Date: 20240805
  Transmission Date: 20241017
  Serious: Yes (Hospitalization)
  Sender: PFIZER
  Company Number: IL-PFIZER INC-PV202400073867

PATIENT
  Age: 77 Year
  Sex: Female
  Weight: 67.2 kg

DRUGS (10)
  1. RITUXIMAB [Suspect]
     Active Substance: RITUXIMAB
     Indication: Diffuse large B-cell lymphoma
     Dosage: 630 MG/M2, C1D1
     Route: 042
     Dates: start: 20240421, end: 20240421
  2. VINCRISTINE SULFATE [Suspect]
     Active Substance: VINCRISTINE SULFATE
     Indication: Diffuse large B-cell lymphoma
     Dosage: 2 MG/M2, C1D1
     Route: 042
     Dates: start: 20240422, end: 20240422
  3. EPCORITAMAB [Suspect]
     Active Substance: EPCORITAMAB
     Indication: Diffuse large B-cell lymphoma
     Dosage: 0.16 MG, C1D1
     Route: 058
     Dates: start: 20240422, end: 20240422
  4. EPCORITAMAB [Suspect]
     Active Substance: EPCORITAMAB
     Dosage: 0.8 MG C1D8
     Route: 058
     Dates: start: 20240430, end: 20240430
  5. EPCORITAMAB [Suspect]
     Active Substance: EPCORITAMAB
     Dosage: 48 MG, C1D15
     Route: 058
     Dates: start: 20240507, end: 20240507
  6. CYCLOPHOSPHAMIDE [Suspect]
     Active Substance: CYCLOPHOSPHAMIDE
     Indication: Diffuse large B-cell lymphoma
     Dosage: 1260 MG/M2, C1D1
     Route: 042
     Dates: start: 20240422, end: 20240422
  7. DOXORUBICIN HYDROCHLORIDE [Suspect]
     Active Substance: DOXORUBICIN HYDROCHLORIDE
     Indication: Diffuse large B-cell lymphoma
     Dosage: 84 MG/M2, C1D1
     Route: 042
     Dates: start: 20240422, end: 20240422
  8. PREDNISONE [Suspect]
     Active Substance: PREDNISONE
     Indication: Diffuse large B-cell lymphoma
     Dosage: UNK
  9. ACETAMINOPHEN [Concomitant]
     Active Substance: ACETAMINOPHEN
     Dosage: 1 MG
     Route: 042
     Dates: start: 20240430, end: 20240430
  10. PROTHIAZINE [Concomitant]
     Dosage: 25 MG
     Route: 048
     Dates: start: 20240430, end: 20240430

REACTIONS (1)
  - Cytokine release syndrome [Recovered/Resolved]

NARRATIVE: CASE EVENT DATE: 20240508
